FAERS Safety Report 21714659 (Version 1)
Quarter: 2022Q4

REPORT INFORMATION
  Report Type: Spontaneous
  Country: BE (occurrence: BE)
  Receive Date: 20221212
  Receipt Date: 20221212
  Transmission Date: 20230113
  Serious: Yes (Disabling)
  Sender: FDA-Public Use
  Company Number: None

PATIENT
  Sex: Male

DRUGS (6)
  1. ZYPREXA [Suspect]
     Active Substance: OLANZAPINE
     Indication: Agitation
     Dosage: STILL USING
     Route: 048
     Dates: start: 20200101
  2. BISOPROLOL [Concomitant]
     Active Substance: BISOPROLOL
     Indication: Product used for unknown indication
     Dosage: 10 MG, UNKNOWN
  3. VARENICLINE TARTRATE [Concomitant]
     Active Substance: VARENICLINE TARTRATE
     Indication: Product used for unknown indication
     Dosage: 1 MG, UNKNOWN
  4. AMISULPRIDE [Concomitant]
     Active Substance: AMISULPRIDE
     Indication: Product used for unknown indication
     Dosage: 200 MG, UNKNOWN
  5. TRANXENE [Concomitant]
     Active Substance: CLORAZEPATE DIPOTASSIUM
     Indication: Product used for unknown indication
     Dosage: 50 MG, UNKNOWN
  6. VENLAFAXINE HYDROCHLORIDE [Concomitant]
     Active Substance: VENLAFAXINE HYDROCHLORIDE
     Indication: Product used for unknown indication
     Dosage: 300 MG, UNKNOWN

REACTIONS (3)
  - Tendon pain [Recovered/Resolved]
  - Malaise [Recovered/Resolved]
  - Dizziness [Recovered/Resolved]
